FAERS Safety Report 11546561 (Version 2)
Quarter: 2017Q1

REPORT INFORMATION
  Report Type: Spontaneous
  Country: US (occurrence: US)
  Receive Date: 20150924
  Receipt Date: 20170328
  Transmission Date: 20170428
  Serious: Yes (Hospitalization, Other)
  Sender: FDA-Public Use
  Company Number: US-ELI_LILLY_AND_COMPANY-US201509004845

PATIENT
  Sex: Female

DRUGS (2)
  1. CYMBALTA [Suspect]
     Active Substance: DULOXETINE HYDROCHLORIDE
     Indication: PRODUCT USED FOR UNKNOWN INDICATION
     Dosage: 60 MG, BID
     Route: 065
  2. CYMBALTA [Suspect]
     Active Substance: DULOXETINE HYDROCHLORIDE
     Dosage: 60 MG, EACH MORNING

REACTIONS (16)
  - Dysphoria [Unknown]
  - Anxiety [Unknown]
  - Mood swings [Unknown]
  - Nightmare [Unknown]
  - Paraesthesia [Unknown]
  - Insomnia [Unknown]
  - Suicidal ideation [Unknown]
  - Dizziness [Unknown]
  - Affect lability [Unknown]
  - Suicide attempt [Unknown]
  - Vertigo [Unknown]
  - Nausea [Unknown]
  - Withdrawal syndrome [Unknown]
  - Sleep disorder [Unknown]
  - Hypomania [Unknown]
  - Sensory disturbance [Unknown]
